FAERS Safety Report 19486463 (Version 1)
Quarter: 2021Q3

REPORT INFORMATION
  Report Type: Spontaneous
  Country: CH (occurrence: CH)
  Receive Date: 20210702
  Receipt Date: 20210702
  Transmission Date: 20211014
  Serious: Yes (Other)
  Sender: FDA-Public Use
  Company Number: CH-ALK-ABELLO A/S-2021AA002577

PATIENT

DRUGS (2)
  1. ALK?DEPOT SQ 802 WESPENGIFT [Suspect]
     Active Substance: VESPULA FLAVOPILOSA VENOM PROTEIN\VESPULA GERMANICA VENOM PROTEIN\VESPULA MACULIFRONS VENOM PROTEIN\VESPULA PENSYLVANICA VENOM PROTEIN\VESPULA SQUAMOSA VENOM PROTEIN\VESPULA VULGARIS VENOM PROTEIN
     Indication: PRODUCT USED FOR UNKNOWN INDICATION
     Dosage: 100 MICROGRAM
     Route: 058
     Dates: start: 201904, end: 202001
  2. ALK?DEPOT SQ 802 WESPENGIFT [Suspect]
     Active Substance: VESPULA FLAVOPILOSA VENOM PROTEIN\VESPULA GERMANICA VENOM PROTEIN\VESPULA MACULIFRONS VENOM PROTEIN\VESPULA PENSYLVANICA VENOM PROTEIN\VESPULA SQUAMOSA VENOM PROTEIN\VESPULA VULGARIS VENOM PROTEIN
     Indication: PRODUCT USED FOR UNKNOWN INDICATION
     Dosage: 100000 SQ/ML
     Route: 058
     Dates: start: 202001, end: 2020

REACTIONS (1)
  - Drug ineffective [Unknown]

NARRATIVE: CASE EVENT DATE: 202004
